FAERS Safety Report 10873397 (Version 1)
Quarter: 2015Q1

REPORT INFORMATION
  Report Type: Spontaneous
  Country: US (occurrence: None)
  Receive Date: 20150223
  Receipt Date: 20150223
  Transmission Date: 20150721
  Serious: No
  Sender: FDA-Public Use
  Company Number: None

PATIENT
  Age: 52 Year
  Sex: Female

DRUGS (12)
  1. ACYCLOVIR. [Concomitant]
     Active Substance: ACYCLOVIR
  2. REBIF [Concomitant]
     Active Substance: INTERFERON BETA-1A
  3. RANITIDINE [Concomitant]
     Active Substance: RANITIDINE\RANITIDINE HYDROCHLORIDE
  4. NITROFURANTOIN. [Concomitant]
     Active Substance: NITROFURANTOIN
  5. NABUMETONE. [Concomitant]
     Active Substance: NABUMETONE
  6. SERTRALINE [Concomitant]
     Active Substance: SERTRALINE HYDROCHLORIDE
  7. AMPYRA [Suspect]
     Active Substance: DALFAMPRIDINE
     Indication: MULTIPLE SCLEROSIS
     Route: 048
     Dates: start: 201107
  8. MODAFINIL. [Concomitant]
     Active Substance: MODAFINIL
  9. ESTRACE [Concomitant]
     Active Substance: ESTRADIOL
  10. MOTRIN [Concomitant]
     Active Substance: IBUPROFEN
  11. BUPROPION [Concomitant]
     Active Substance: BUPROPION
  12. TRAZODONE [Concomitant]
     Active Substance: TRAZODONE HYDROCHLORIDE

REACTIONS (1)
  - Urinary tract infection [None]

NARRATIVE: CASE EVENT DATE: 20140409
